FAERS Safety Report 7271921-X (Version None)
Quarter: 2011Q1

REPORT INFORMATION
  Report Type: 
  Country: None (occurrence: None)
  Receive Date: 20110203
  Receipt Date: 20110128
  Transmission Date: 20110831
  Serious: Yes (Hospitalization)
  Sender: FDA-Public Use
  Company Number: JP-PFIZER INC-2011014558

PATIENT
  Age: 60 Year
  Sex: Female

DRUGS (3)
  1. MUCOSIL-10 [Suspect]
  2. ASVERIN [Suspect]
  3. ZITHROMAC SR [Suspect]
     Dosage: UNK, SINGLE
     Route: 048

REACTIONS (1)
  - SHOCK [None]
